FAERS Safety Report 21858007 (Version 1)
Quarter: 2023Q1

REPORT INFORMATION
  Report Type: Report from Study
  Country: US (occurrence: US)
  Receive Date: 20230113
  Receipt Date: 20230113
  Transmission Date: 20230418
  Serious: Yes (Other)
  Sender: FDA-Public Use
  Company Number: US-ABBVIE-4268065

PATIENT
  Sex: Female

DRUGS (14)
  1. RINVOQ [Suspect]
     Active Substance: UPADACITINIB
     Indication: Rheumatoid arthritis
     Dosage: 15 MG ER
  2. ZYRTEC ALLER TAB 10MG [Concomitant]
     Indication: Product used for unknown indication
  3. FOLIC ACID TAB 1MG [Concomitant]
     Indication: Product used for unknown indication
  4. ROPINIROLE H TB2 12MG [Concomitant]
     Indication: Product used for unknown indication
  5. PROTONIX TBE 40MG [Concomitant]
     Indication: Product used for unknown indication
  6. POTASSIUM CH PAC 20MEQ [Concomitant]
     Indication: Product used for unknown indication
  7. VITAMIN B CO TAB [Concomitant]
     Indication: Product used for unknown indication
  8. RINVOQ TB2 15MG [Concomitant]
     Indication: Product used for unknown indication
  9. EUFLE XA INJ 10MG/ML [Concomitant]
     Indication: Product used for unknown indication
  10. XARELTO [Concomitant]
     Active Substance: RIVAROXABAN
     Indication: Product used for unknown indication
  11. TIZANIDINE H CAP 6MG [Concomitant]
     Indication: Product used for unknown indication
  12. OXYBUTYNIN C TAB 5MG, [Concomitant]
     Indication: Product used for unknown indication
  13. PREDNISONE TAB 5MG, [Concomitant]
     Indication: Product used for unknown indication
  14. LEFLUNOMIDE TAB 20MG, [Concomitant]
     Indication: Product used for unknown indication

REACTIONS (1)
  - Eye operation [Unknown]
